FAERS Safety Report 14164538 (Version 1)
Quarter: 2017Q4

REPORT INFORMATION
  Report Type: Spontaneous
  Country: NO (occurrence: NO)
  Receive Date: 20171107
  Receipt Date: 20171107
  Transmission Date: 20180321
  Serious: Yes (Other)
  Sender: FDA-Public Use
  Company Number: NO-SHIRE-NO201725602

PATIENT

DRUGS (1)
  1. REVESTIVE [Suspect]
     Active Substance: TEDUGLUTIDE
     Indication: SHORT-BOWEL SYNDROME
     Dosage: 0.05 MG/KG, UNK
     Route: 065
     Dates: start: 201506

REACTIONS (4)
  - Large intestine perforation [Unknown]
  - Abscess [Unknown]
  - Peritonitis [Unknown]
  - Fistula [Unknown]
